FAERS Safety Report 11882107 (Version 1)
Quarter: 2015Q4

REPORT INFORMATION
  Report Type: Spontaneous
  Country: JP (occurrence: JP)
  Receive Date: 20151231
  Receipt Date: 20151231
  Transmission Date: 20160305
  Serious: Yes (Other)
  Sender: FDA-Public Use
  Company Number: JP-BEH-2015057378

PATIENT
  Age: 64 Year
  Sex: Male

DRUGS (4)
  1. SANGLOPOR IV INFUSION 2.5G [Suspect]
     Active Substance: HUMAN IMMUNOGLOBULIN G
     Indication: SEPSIS
     Route: 042
     Dates: start: 20151224, end: 20151225
  2. DOPAMINE [Concomitant]
     Active Substance: DOPAMINE\DOPAMINE HYDROCHLORIDE
  3. HEPARIN [Concomitant]
     Active Substance: HEPARIN SODIUM
  4. TEICOPLANIN [Concomitant]
     Active Substance: TEICOPLANIN

REACTIONS (1)
  - Anaphylactic shock [Unknown]

NARRATIVE: CASE EVENT DATE: 20151225
